FAERS Safety Report 23535606 (Version 2)
Quarter: 2024Q2

REPORT INFORMATION
  Report Type: Report from Study
  Country: JP (occurrence: JP)
  Receive Date: 20240218
  Receipt Date: 20240424
  Transmission Date: 20240716
  Serious: Yes (Hospitalization, Other)
  Sender: FDA-Public Use
  Company Number: JP-TAKEDA-2023TJP007082

PATIENT
  Age: 13 Year
  Sex: Female
  Weight: 58.9 kg

DRUGS (13)
  1. MIDAZOLAM HYDROCHLORIDE [Suspect]
     Active Substance: MIDAZOLAM HYDROCHLORIDE
     Indication: Epilepsy
     Dosage: 10 MILLIGRAM, SINGLE
     Route: 065
     Dates: start: 20230513, end: 20230513
  2. MIDAZOLAM HYDROCHLORIDE [Suspect]
     Active Substance: MIDAZOLAM HYDROCHLORIDE
     Dosage: 10 MILLIGRAM
     Route: 065
     Dates: start: 20230602, end: 20230602
  3. MIDAZOLAM HYDROCHLORIDE [Suspect]
     Active Substance: MIDAZOLAM HYDROCHLORIDE
     Dosage: 10 MILLIGRAM, SINGLE
     Route: 065
     Dates: start: 20230630, end: 20230630
  4. MIDAZOLAM HYDROCHLORIDE [Suspect]
     Active Substance: MIDAZOLAM HYDROCHLORIDE
     Dosage: 10 MILLIGRAM, SINGLE
     Route: 065
     Dates: start: 20230716, end: 20230716
  5. MIDAZOLAM HYDROCHLORIDE [Suspect]
     Active Substance: MIDAZOLAM HYDROCHLORIDE
     Dosage: 10 MILLIGRAM, SINGLE
     Route: 065
     Dates: start: 20230814, end: 20230814
  6. MIDAZOLAM HYDROCHLORIDE [Suspect]
     Active Substance: MIDAZOLAM HYDROCHLORIDE
     Dosage: 10 MILLIGRAM, SINGLE
     Route: 065
     Dates: start: 20230819, end: 20230819
  7. MIDAZOLAM HYDROCHLORIDE [Suspect]
     Active Substance: MIDAZOLAM HYDROCHLORIDE
     Dosage: 10 MILLIGRAM, SINGLE
     Route: 065
     Dates: start: 20230823, end: 20230823
  8. MIDAZOLAM HYDROCHLORIDE [Suspect]
     Active Substance: MIDAZOLAM HYDROCHLORIDE
     Dosage: 10 MILLIGRAM, SINGLE
     Route: 065
     Dates: start: 20230915, end: 20230915
  9. MIDAZOLAM HYDROCHLORIDE [Suspect]
     Active Substance: MIDAZOLAM HYDROCHLORIDE
     Dosage: 10 MILLIGRAM, SINGLE
     Route: 065
     Dates: start: 20231103, end: 20231103
  10. LEVETIRACETAM [Concomitant]
     Active Substance: LEVETIRACETAM
     Dosage: 4 DOSAGE FORM
     Route: 065
  11. LAMICTAL [Concomitant]
     Active Substance: LAMOTRIGINE
     Indication: Epilepsy
     Dosage: 2 MILLIGRAM
     Route: 065
     Dates: start: 20230516
  12. LAMICTAL [Concomitant]
     Active Substance: LAMOTRIGINE
     Dosage: 5 MILLIGRAM
     Route: 065
     Dates: start: 20230529
  13. LAMICTAL [Concomitant]
     Active Substance: LAMOTRIGINE
     Dosage: 25 MILLIGRAM
     Route: 065
     Dates: start: 20230629

REACTIONS (3)
  - Altered state of consciousness [Recovered/Resolved]
  - Headache [Recovered/Resolved]
  - Nausea [Recovered/Resolved]

NARRATIVE: CASE EVENT DATE: 20230513
